FAERS Safety Report 5392918-0 (Version None)
Quarter: 2007Q3

REPORT INFORMATION
  Report Type: 
  Country: None (occurrence: None)
  Receive Date: 20070721
  Receipt Date: 20070710
  Transmission Date: 20080115
  Serious: Yes (Other)
  Sender: FDA-Public Use
  Company Number: US-PFIZER INC-2007058912

PATIENT
  Sex: Male
  Weight: 127 kg

DRUGS (4)
  1. CHANTIX [Suspect]
     Indication: SMOKING CESSATION THERAPY
     Route: 048
     Dates: start: 20070528, end: 20070602
  2. LEVOTHYROXINE SODIUM [Concomitant]
  3. LIPITOR [Concomitant]
  4. NOVOLOG [Concomitant]

REACTIONS (4)
  - BLOOD GLUCOSE INCREASED [None]
  - EYE PAIN [None]
  - MIGRAINE [None]
  - VISUAL ACUITY REDUCED [None]
